FAERS Safety Report 5885663-6 (Version None)
Quarter: 2008Q3

REPORT INFORMATION
  Report Type: 
  Country: None (occurrence: None)
  Receive Date: 20080912
  Receipt Date: 20080830
  Transmission Date: 20090109
  Serious: Yes (Hospitalization, Disabling)
  Sender: FDA-Public Use
  Company Number: 2008S1016225

PATIENT
  Age: 3 Year
  Sex: Male

DRUGS (9)
  1. MERCAPTAMINE BITARTRATE (MERCAPTAMINE BITARTRATE) [Suspect]
     Indication: CYSTINOSIS
     Dosage: ORAL   700 MG;4 TIMES A DAY;ORAL
     Route: 048
     Dates: start: 20031218
  2. SODIUM BICARBONATE [Concomitant]
  3. OMEPRAZOLE [Concomitant]
  4. CARITINE [Concomitant]
  5. POTASSIUM CITRATE [Concomitant]
  6. SODIUM PHOSPHATE W/ SODIUM PHOSPHATE DIBASIC [Concomitant]
  7. FERROUS FUMARATE [Concomitant]
  8. ALPHACALCIDOL [Concomitant]
  9. CYSTEAMINE /00492501/ [Concomitant]

REACTIONS (3)
  - ABASIA [None]
  - BONE SCAN ABNORMAL [None]
  - MUSCLE CONTRACTURE [None]
